FAERS Safety Report 22155720 (Version 2)
Quarter: 2023Q2

REPORT INFORMATION
  Report Type: Report from Study
  Country: CA (occurrence: CA)
  Receive Date: 20230330
  Receipt Date: 20230407
  Transmission Date: 20230722
  Serious: Yes (Other)
  Sender: FDA-Public Use
  Company Number: CA-TEVA-2023-CA-2852532

PATIENT
  Age: 59 Year
  Sex: Male

DRUGS (3)
  1. AJOVY [Suspect]
     Active Substance: FREMANEZUMAB-VFRM
     Indication: Migraine prophylaxis
     Dosage: LAST DOSE ADMINISTERED DATE 28-FEB-2023
     Route: 058
     Dates: start: 20221228, end: 20230228
  2. PROPRANOLOL [Concomitant]
     Active Substance: PROPRANOLOL HYDROCHLORIDE
     Indication: Product used for unknown indication
  3. Reactine [Concomitant]
     Indication: Product used for unknown indication
     Dosage: 10MG THE DAY BEFORE AND?ON THE MORNING OF INJECTION
     Dates: start: 20230227, end: 20230228

REACTIONS (13)
  - Lymphadenopathy [Recovered/Resolved]
  - Migraine [Unknown]
  - Nervousness [Unknown]
  - Injection site swelling [Recovered/Resolved]
  - Injection site mass [Recovered/Resolved]
  - Injection site erythema [Recovered/Resolved]
  - Injection site warmth [Recovered/Resolved]
  - Injection site pain [Recovered/Resolved]
  - Anxiety [Unknown]
  - Pyrexia [Unknown]
  - Peripheral swelling [Recovered/Resolved]
  - Injection site reaction [Recovered/Resolved]
  - Therapeutic product effect incomplete [Unknown]

NARRATIVE: CASE EVENT DATE: 20221228
